FAERS Safety Report 6558148-1 (Version None)
Quarter: 2010Q1

REPORT INFORMATION
  Report Type: 
  Country: None (occurrence: None)
  Receive Date: 20100129
  Receipt Date: 20100121
  Transmission Date: 20100710
  Serious: Yes (Hospitalization)
  Sender: FDA-Public Use
  Company Number: D0065709A

PATIENT
  Sex: Female

DRUGS (4)
  1. REQUIP [Suspect]
     Dosage: 12MG IN THE MORNING
     Route: 048
     Dates: start: 20080801
  2. JODETTEN [Concomitant]
     Route: 065
  3. METOHEXAL [Concomitant]
     Route: 065
  4. BELOC [Concomitant]
     Route: 065

REACTIONS (20)
  - ARTHRITIS [None]
  - BACK PAIN [None]
  - BLOOD CHOLESTEROL ABNORMAL [None]
  - CARDIAC MURMUR [None]
  - DACTYLITIS [None]
  - DISCOMFORT [None]
  - DRUG ADMINISTRATION ERROR [None]
  - GAIT DISTURBANCE [None]
  - JOINT SWELLING [None]
  - LOCAL SWELLING [None]
  - MONARTHRITIS [None]
  - MUSCULAR WEAKNESS [None]
  - NIGHT SWEATS [None]
  - OEDEMA PERIPHERAL [None]
  - OSTEOARTHRITIS [None]
  - RAYNAUD'S PHENOMENON [None]
  - RHEUMATIC FEVER [None]
  - RHEUMATOID ARTHRITIS [None]
  - SPINAL OSTEOARTHRITIS [None]
  - VENTRICULAR EXTRASYSTOLES [None]
